FAERS Safety Report 25946047 (Version 1)
Quarter: 2025Q4

REPORT INFORMATION
  Report Type: Report from Study
  Country: US (occurrence: US)
  Receive Date: 20251021
  Receipt Date: 20251021
  Transmission Date: 20260118
  Serious: Yes (Other)
  Sender: ALEXION PHARMACEUTICALS
  Company Number: US-ASTRAZENECA-202510NAM013469US

PATIENT
  Sex: Female

DRUGS (1)
  1. OLAPARIB [Suspect]
     Active Substance: OLAPARIB
     Indication: Ovarian cancer
     Dosage: 300 MILLIGRAM, BID
     Dates: start: 20250826

REACTIONS (6)
  - Cardiac failure [Unknown]
  - Constipation [Unknown]
  - Hypertension [Recovered/Resolved]
  - Fall [Unknown]
  - Renal impairment [Unknown]
  - Back injury [Unknown]
